FAERS Safety Report 7420586-2 (Version None)
Quarter: 2011Q2

REPORT INFORMATION
  Report Type: 
  Country: None (occurrence: None)
  Receive Date: 20110418
  Receipt Date: 20100909
  Transmission Date: 20111010
  Serious: No
  Sender: FDA-Public Use
  Company Number: US-TYCO HEALTHCARE/MALLINCKRODT-T201001980

PATIENT
  Sex: Female

DRUGS (1)
  1. CYSTO-CONRAY II [Suspect]
     Indication: CYSTOGRAM
     Dosage: 10 ML, UNK
     Route: 042

REACTIONS (1)
  - INCORRECT ROUTE OF DRUG ADMINISTRATION [None]
